FAERS Safety Report 7601995-5 (Version None)
Quarter: 2011Q3

REPORT INFORMATION
  Report Type: 
  Country: None (occurrence: None)
  Receive Date: 20110711
  Receipt Date: 20110704
  Transmission Date: 20111222
  Serious: Yes (Other)
  Sender: FDA-Public Use
  Company Number: CA-PFIZER INC-2011135689

PATIENT
  Age: 71 Year
  Sex: Male

DRUGS (2)
  1. VITAMIN B-12 [Concomitant]
     Indication: GASTRITIS
     Dosage: 1000 UG, ONCE
  2. XALATAN [Suspect]
     Indication: GLAUCOMA
     Dosage: 1 GTT, 1X/DAY
     Route: 047

REACTIONS (1)
  - CATARACT [None]
